FAERS Safety Report 5853687-0 (Version None)
Quarter: 2008Q3

REPORT INFORMATION
  Report Type: 
  Country: None (occurrence: None)
  Receive Date: 20080822
  Receipt Date: 20080813
  Transmission Date: 20090109
  Serious: Yes (Other)
  Sender: FDA-Public Use
  Company Number: PHHY2008CA18090

PATIENT
  Sex: Male

DRUGS (2)
  1. CLOZARIL [Suspect]
     Indication: SCHIZOPHRENIA
     Dosage: 700 MG / DAY (200 MG IN THE MORNING AND 500 MG IN THE NIGHT)
     Route: 048
  2. EPIVAL [Concomitant]
     Dosage: 500 MG, BID

REACTIONS (3)
  - CONVULSION [None]
  - ENURESIS [None]
  - SOMNOLENCE [None]
